FAERS Safety Report 8948225 (Version 3)
Quarter: 2013Q1

REPORT INFORMATION
  Report Type: Spontaneous
  Country: US (occurrence: None)
  Receive Date: 20121126
  Receipt Date: 20121228
  Transmission Date: 20140127
  Serious: Yes (Hospitalization, Other)
  Sender: FDA-Public Use
  Company Number: JPI-P-026336

PATIENT
  Age: 75 Year
  Sex: Male
  Weight: 116.58 kg

DRUGS (3)
  1. XYREM (500 MILLIGRAM/MILLILITERS, SOLUTION) (SODIUM OXYBATE) [Suspect]
     Indication: CATAPLEXY
     Dosage: (2.25 GM, 2 IN 1 D)
     Route: 048
     Dates: start: 20040818
  2. XYREM (500 MILLIGRAM/MILLILITERS, SOLUTION) (SODIUM OXYBATE) [Suspect]
     Indication: SOMNOLENCE
     Dosage: (2.25 GM, 2 IN 1 D)
     Route: 048
     Dates: start: 20040818
  3. MULTIPLY UNSPECIFIED MEDICATIONS [Concomitant]

REACTIONS (5)
  - Poor quality sleep [None]
  - Arthropathy [None]
  - Surgical procedure repeated [None]
  - Post procedural infection [None]
  - Loose body in joint [None]
